FAERS Safety Report 5481530-0 (Version None)
Quarter: 2007Q4

REPORT INFORMATION
  Report Type: 
  Country: None (occurrence: None)
  Receive Date: 20071010
  Receipt Date: 20071003
  Transmission Date: 20080405
  Serious: Yes (Other)
  Sender: FDA-Public Use
  Company Number: BR-AVENTIS-200719029GDDC

PATIENT
  Age: 3 Year
  Sex: Female
  Weight: 16.5 kg

DRUGS (2)
  1. LANTUS [Suspect]
     Route: 058
     Dates: start: 20060101
  2. OPTIPEN (INSULIN PUMP) [Suspect]
     Dates: start: 20060101

REACTIONS (6)
  - DERMATITIS ALLERGIC [None]
  - HYPERGLYCAEMIA [None]
  - HYPOGLYCAEMIA [None]
  - HYPOGLYCAEMIC SEIZURE [None]
  - OFF LABEL USE [None]
  - TREMOR [None]
